FAERS Safety Report 7115503-9 (Version None)
Quarter: 2010Q4

REPORT INFORMATION
  Report Type: 
  Country: None (occurrence: None)
  Receive Date: 20101122
  Receipt Date: 20100706
  Transmission Date: 20110411
  Serious: No
  Sender: FDA-Public Use
  Company Number: US-BAYER-201027233NA

PATIENT
  Sex: Female

DRUGS (3)
  1. CLIMARA PRO [Suspect]
     Indication: HOT FLUSH
     Dosage: 0.045MG/0.015MG/DAY
     Route: 062
     Dates: start: 20100501
  2. CLIMARA PRO [Interacting]
     Dosage: 0.045MG/0.015MG/DAY
     Route: 062
     Dates: start: 20100222
  3. EFFEXOR [Interacting]
     Indication: PRODUCT USED FOR UNKNOWN INDICATION

REACTIONS (2)
  - HOT FLUSH [None]
  - NIGHT SWEATS [None]
